FAERS Safety Report 7812608-1 (Version None)
Quarter: 2011Q4

REPORT INFORMATION
  Report Type: 
  Country: None (occurrence: None)
  Receive Date: 20111013
  Receipt Date: 20110822
  Transmission Date: 20120403
  Serious: No
  Sender: FDA-Public Use
  Company Number: US-NOVEN-11US003035

PATIENT
  Sex: Female

DRUGS (3)
  1. ALBUTEROL [Concomitant]
     Indication: ASTHMA
     Route: 055
  2. FENTANYL [Suspect]
     Indication: SCAR PAIN
     Dosage: 75 UG/HR, Q72H
     Route: 062
     Dates: start: 20110804
  3. VICODIN [Concomitant]
     Indication: PAIN
     Route: 048

REACTIONS (5)
  - VOMITING [None]
  - SOMNAMBULISM [None]
  - PRODUCT QUALITY ISSUE [None]
  - DIARRHOEA [None]
  - INADEQUATE ANALGESIA [None]
